FAERS Safety Report 15434721 (Version 1)
Quarter: 2018Q3

REPORT INFORMATION
  Report Type: Spontaneous
  Country: US (occurrence: US)
  Receive Date: 20180927
  Receipt Date: 20180927
  Transmission Date: 20181010
  Serious: No
  Sender: FDA-Public Use
  Company Number: US-INDIVIOR LIMITED-INDV-111019-2018

PATIENT
  Age: 52 Year
  Sex: Male

DRUGS (2)
  1. SUBOXONE [Suspect]
     Active Substance: BUPRENORPHINE HYDROCHLORIDE\NALOXONE HYDROCHLORIDE
     Indication: PAIN
     Dosage: ONE TABLET TWICE PER DAY
     Route: 065
     Dates: end: 2012
  2. SUBOXONE [Suspect]
     Active Substance: BUPRENORPHINE HYDROCHLORIDE\NALOXONE HYDROCHLORIDE
     Indication: PAIN
     Dosage: CUT THE 4 MG FILM AND TAKE IT ONCE DAILY
     Route: 065
     Dates: start: 2012, end: 2015

REACTIONS (7)
  - Renal function test abnormal [Unknown]
  - Wrong technique in product usage process [Recovered/Resolved]
  - Asthenia [Recovered/Resolved]
  - Inappropriate schedule of drug administration [Recovered/Resolved]
  - Liver function test abnormal [Recovered/Resolved]
  - Off label use [Recovered/Resolved]
  - Drug withdrawal syndrome [Recovered/Resolved]

NARRATIVE: CASE EVENT DATE: 2012
